FAERS Safety Report 7729800-7 (Version None)
Quarter: 2011Q3

REPORT INFORMATION
  Report Type: 
  Country: None (occurrence: None)
  Receive Date: 20110906
  Receipt Date: 20110824
  Transmission Date: 20111222
  Serious: Yes (Hospitalization, Other)
  Sender: FDA-Public Use
  Company Number: JP-ROCHE-610049

PATIENT
  Sex: Male

DRUGS (61)
  1. TOCILIZUMAB [Suspect]
     Route: 041
     Dates: start: 20081114, end: 20081114
  2. TOCILIZUMAB [Suspect]
     Route: 041
     Dates: start: 20090706
  3. PREDNISOLONE [Suspect]
     Route: 048
     Dates: start: 20100507, end: 20100617
  4. AMLODIPINE [Concomitant]
     Route: 048
     Dates: start: 20080728, end: 20080909
  5. TRAVOPROST [Concomitant]
     Dosage: DRUG: TRAVATANZ; FORM: DROPS (INTRAOCULAR), NOTE: PROPER QUANTITY
     Route: 047
     Dates: start: 20081002
  6. TOCILIZUMAB [Suspect]
     Route: 041
     Dates: start: 20080919, end: 20081016
  7. TOCILIZUMAB [Suspect]
     Route: 041
     Dates: start: 20081127, end: 20081127
  8. TOCILIZUMAB [Suspect]
     Route: 041
     Dates: start: 20090306, end: 20090522
  9. TOCILIZUMAB [Suspect]
     Route: 041
     Dates: start: 20090605, end: 20090605
  10. PREDNISOLONE [Suspect]
     Dosage: FORM: ORAL FORMULATION (NOT OTHERWISE SPECIFIED).
     Route: 048
     Dates: start: 20080731, end: 20080806
  11. PREDNISOLONE [Suspect]
     Dosage: FORM: ORAL FORMULATION (NOT OTHERWISE SPECIFIED).
     Route: 048
     Dates: start: 20081115, end: 20090206
  12. ALFAROL [Concomitant]
     Route: 048
     Dates: start: 20100306, end: 20100506
  13. LISINOPRIL [Concomitant]
     Route: 048
     Dates: start: 20080714, end: 20090306
  14. LISINOPRIL [Concomitant]
     Route: 048
     Dates: start: 20090307, end: 20090522
  15. LISINOPRIL [Concomitant]
     Route: 048
     Dates: start: 20090620, end: 20090706
  16. AMLODIPINE [Concomitant]
     Route: 048
     Dates: start: 20100104
  17. TOCILIZUMAB [Suspect]
     Route: 041
     Dates: start: 20080909, end: 20080909
  18. PREDNISOLONE [Suspect]
     Indication: JUVENILE ARTHRITIS
     Dosage: FORM: ORAL FORMULATION (NOT OTHERWISE SPECIFIED).
     Route: 048
     Dates: end: 20080723
  19. FAMOTIDINE [Concomitant]
     Route: 048
     Dates: start: 20080702, end: 20081002
  20. GENTAMICIN SULFATE [Concomitant]
     Dosage: NOTE: PROPER QUANTITY
     Route: 061
     Dates: start: 20080702, end: 20081016
  21. PREDNISOLONE [Suspect]
     Route: 048
     Dates: start: 20100104, end: 20100318
  22. PREDNISOLONE [Suspect]
     Route: 048
     Dates: start: 20100723, end: 20101110
  23. PREDNISOLONE [Suspect]
     Route: 048
     Dates: start: 20110204, end: 20110303
  24. IBRUPROFEN [Concomitant]
     Route: 048
     Dates: start: 20080705, end: 20080709
  25. IBRUPROFEN [Concomitant]
     Route: 048
     Dates: start: 20080710, end: 20081002
  26. HIRUDOID [Concomitant]
     Dosage: NOTE: PROPER QUANTITY
     Route: 061
     Dates: start: 20080714
  27. KETOPROFEN [Concomitant]
     Dosage: DRUG NAME REPORTED AS MOHRUS TAPE, FORM:TAPE, PROPER QUANTITY
     Route: 061
     Dates: start: 20090605
  28. TOCILIZUMAB [Suspect]
     Indication: JUVENILE ARTHRITIS
     Route: 041
     Dates: start: 20080715, end: 20080812
  29. TOCILIZUMAB [Suspect]
     Route: 041
     Dates: start: 20081031, end: 20081031
  30. TOCILIZUMAB [Suspect]
     Route: 041
     Dates: start: 20081211, end: 20081225
  31. TOCILIZUMAB [Suspect]
     Dosage: NOTE: DOSAGE IS UNCERTAIN.
     Route: 041
     Dates: end: 20100104
  32. PREDNISOLONE [Suspect]
     Dosage: FORM: ORAL FORMULATION (NOT OTHERWISE SPECIFIED).
     Route: 048
     Dates: start: 20080910, end: 20080919
  33. PREDNISOLONE [Suspect]
     Dosage: FORM: ORAL FORMULATION (NOT OTHERWISE SPECIFIED).
     Route: 048
     Dates: start: 20081003, end: 20081114
  34. XALATAN [Concomitant]
     Dosage: FORM: DROPS (INTRAOCULAR); NOTE: PROPER QUANTITY
     Route: 047
     Dates: end: 20081001
  35. MUCOSTA [Concomitant]
     Dosage: FORM: ORAL FORMULATION (NOT OTHERWISE SPECIFIED).
     Route: 048
     Dates: start: 20080702, end: 20081016
  36. IBRUPROFEN [Concomitant]
     Route: 048
     Dates: start: 20081003, end: 20081016
  37. FLOMOX [Concomitant]
     Route: 048
     Dates: start: 20080806, end: 20080811
  38. TIMOPTOL XE [Concomitant]
     Dosage: FORM; DROPS (INTRAOCULAR); NOTE: PROPER QUANTITY
     Route: 047
     Dates: start: 20081002
  39. TOCILIZUMAB [Suspect]
     Route: 041
     Dates: start: 20090206, end: 20090206
  40. PREDNISOLONE [Suspect]
     Dosage: FORM: ORAL FORMULATION (NOT OTHERWISE SPECIFIED).
     Route: 048
     Dates: start: 20080814, end: 20080826
  41. TIMOLOL MALEATE [Concomitant]
     Dosage: DRUG: RYSMON TG; FORM: DROPS (INTRAOCULAR); NOTE : PROPER QUANTITY
     Route: 047
     Dates: end: 20080803
  42. LAXOBERON [Concomitant]
     Dosage: NOTE: PROPER QUANTITY
     Route: 048
     Dates: start: 20080704, end: 20081016
  43. FELBINAC [Concomitant]
     Dosage: DRUG: SELTOUCH; NOTE: PROPER QUANTITY. FORM: TAPE
     Route: 061
     Dates: start: 20080707, end: 20090604
  44. GLAKAY [Concomitant]
     Route: 048
     Dates: start: 20080715
  45. TOCILIZUMAB [Suspect]
     Route: 041
     Dates: start: 20080826, end: 20080826
  46. TOCILIZUMAB [Suspect]
     Route: 041
     Dates: start: 20090123, end: 20090123
  47. PREDNISOLONE [Suspect]
     Dosage: FORM: ORAL FORMULATION (NOT OTHERWISE SPECIFIED).
     Route: 048
     Dates: start: 20080724, end: 20080730
  48. PREDNISOLONE [Suspect]
     Route: 048
     Dates: start: 20080807, end: 20080813
  49. PREDNISOLONE [Suspect]
     Dosage: FORM: ORAL FORMULATION (NOT OTHERWISE SPECIFIED).
     Route: 048
     Dates: start: 20080827, end: 20080909
  50. PREDNISOLONE [Suspect]
     Route: 048
     Dates: start: 20100319, end: 20100506
  51. PREDNISOLONE [Suspect]
     Route: 048
     Dates: start: 20100618, end: 20100722
  52. AZUNOL [Concomitant]
     Dosage: NOTE: PROPER QUANTITY
     Route: 061
     Dates: start: 20080703, end: 20081016
  53. ALFAROL [Concomitant]
     Dosage: DRUG NAME REPORTED AS ALFAROL CAPSULES
     Route: 048
     Dates: start: 20080710, end: 20080715
  54. TOCILIZUMAB [Suspect]
     Route: 041
     Dates: start: 20090220, end: 20090220
  55. TOCILIZUMAB [Suspect]
     Route: 041
     Dates: start: 20090619, end: 20090619
  56. PREDNISOLONE [Suspect]
     Dosage: FORM: ORAL FORMULATION (NOT OTHERWISE SPECIFIED).
     Route: 048
     Dates: start: 20080920, end: 20081002
  57. PREDNISOLONE [Suspect]
     Dosage: FORM: ORAL FORMULATION (NOT OTHERWISE SPECIFIED).
     Route: 048
     Dates: start: 20090207
  58. PREDNISOLONE [Suspect]
     Route: 048
     Dates: start: 20101111, end: 20110105
  59. PREDNISOLONE [Suspect]
     Route: 048
     Dates: start: 20110106, end: 20110203
  60. MUCOSTA [Concomitant]
     Route: 048
     Dates: start: 20081017
  61. LISINOPRIL [Concomitant]
     Route: 048
     Dates: start: 20090707, end: 20090708

REACTIONS (8)
  - PARONYCHIA [None]
  - HERPES ZOSTER [None]
  - SUBARACHNOID HAEMORRHAGE [None]
  - UPPER RESPIRATORY TRACT INFLAMMATION [None]
  - BLEPHARITIS [None]
  - POLYARTERITIS NODOSA [None]
  - RENAL INFARCT [None]
  - CEREBRAL INFARCTION [None]
